FAERS Safety Report 8578972-3 (Version None)
Quarter: 2012Q3

REPORT INFORMATION
  Report Type: 
  Country: None (occurrence: None)
  Receive Date: 20120808
  Receipt Date: 20120806
  Transmission Date: 20120928
  Serious: Yes (Other)
  Sender: FDA-Public Use
  Company Number: US-PFIZER INC-2012191963

PATIENT
  Age: 44 Year
  Sex: Female
  Weight: 87 kg

DRUGS (1)
  1. CELEBREX [Suspect]
     Dosage: UNK
     Route: 048

REACTIONS (8)
  - FEELING ABNORMAL [None]
  - PARALYSIS [None]
  - MALAISE [None]
  - FIBROMYALGIA [None]
  - DRUG INEFFECTIVE [None]
  - AMNESIA [None]
  - TRANSIENT ISCHAEMIC ATTACK [None]
  - ACTIVITIES OF DAILY LIVING IMPAIRED [None]
